FAERS Safety Report 18367344 (Version 2)
Quarter: 2021Q2

REPORT INFORMATION
  Report Type: Spontaneous
  Country: US (occurrence: US)
  Receive Date: 20201009
  Receipt Date: 20210629
  Transmission Date: 20210717
  Serious: Yes (Other)
  Sender: FDA-Public Use
  Company Number: US-JNJFOC-20201003981

PATIENT
  Age: 30 Year
  Sex: Female

DRUGS (8)
  1. AMITRIPTYLINE [Concomitant]
     Active Substance: AMITRIPTYLINE
     Indication: CYSTITIS INTERSTITIAL
     Route: 065
     Dates: start: 200706
  2. NECON [ETHINYLESTRADIOL;NORETHISTERONE] [Concomitant]
     Indication: ACNE
     Route: 065
  3. FLEXERIL [Concomitant]
     Active Substance: CYCLOBENZAPRINE HYDROCHLORIDE
     Indication: CYSTITIS INTERSTITIAL
     Route: 065
     Dates: start: 2007, end: 201811
  4. NORGESTREL/ETHINYL ESTRADIOL [Concomitant]
     Active Substance: ETHINYL ESTRADIOL\NORGESTREL
     Indication: ACNE
     Route: 065
     Dates: start: 20070620, end: 20150901
  5. DIAZEPAM. [Concomitant]
     Active Substance: DIAZEPAM
     Indication: CYSTITIS INTERSTITIAL
     Route: 065
     Dates: start: 201708, end: 201802
  6. ELMIRON [Suspect]
     Active Substance: PENTOSAN POLYSULFATE SODIUM
     Indication: CYSTITIS INTERSTITIAL
     Route: 048
     Dates: start: 20080512, end: 20111230
  7. ELMIRON [Suspect]
     Active Substance: PENTOSAN POLYSULFATE SODIUM
     Indication: BLADDER PAIN
     Route: 048
  8. ATARAX [Concomitant]
     Active Substance: HYDROXYZINE HYDROCHLORIDE
     Indication: CYSTITIS INTERSTITIAL
     Route: 065
     Dates: start: 2007, end: 201811

REACTIONS (1)
  - Chorioretinopathy [Not Recovered/Not Resolved]

NARRATIVE: CASE EVENT DATE: 201607
